FAERS Safety Report 12755860 (Version 1)
Quarter: 2016Q3

REPORT INFORMATION
  Report Type: Spontaneous
  Country: US (occurrence: US)
  Receive Date: 20160916
  Receipt Date: 20160916
  Transmission Date: 20161109
  Serious: Yes (Other)
  Sender: FDA-Public Use
  Company Number: US-VALIDUS PHARMACEUTICALS LLC-US-2016VAL002623

PATIENT

DRUGS (2)
  1. ELIQUIS [Concomitant]
     Active Substance: APIXABAN
     Indication: PRODUCT USED FOR UNKNOWN INDICATION
     Dosage: UNK
  2. METOPROLOL. [Suspect]
     Active Substance: METOPROLOL
     Indication: BLOOD PRESSURE INCREASED
     Dosage: UNK, PRN

REACTIONS (9)
  - Cerebrovascular accident [Unknown]
  - Depression [Unknown]
  - Hypoaesthesia [Unknown]
  - Malaise [Unknown]
  - Feeling abnormal [Unknown]
  - Nightmare [Unknown]
  - Fear [Unknown]
  - Abdominal discomfort [Unknown]
  - Hallucination [Unknown]
